FAERS Safety Report 19562718 (Version 12)
Quarter: 2022Q3

REPORT INFORMATION
  Report Type: Report from Study
  Country: CA (occurrence: CA)
  Receive Date: 20210715
  Receipt Date: 20220701
  Transmission Date: 20221027
  Serious: Yes (Death, Hospitalization, Other)
  Sender: FDA-Public Use
  Company Number: CA-OTSUKA-2021_024157

PATIENT
  Sex: Male

DRUGS (4)
  1. CEDAZURIDINE\DECITABINE [Suspect]
     Active Substance: CEDAZURIDINE\DECITABINE
     Indication: Myelodysplastic syndrome
     Dosage: 35/100 MG (5 TABLETS ORALLY ON DAYS 1 TO 5 EVERY 28 DAYS)
     Route: 048
     Dates: start: 20210602
  2. CEDAZURIDINE\DECITABINE [Suspect]
     Active Substance: CEDAZURIDINE\DECITABINE
     Dosage: REDUCED TO 4 PILLS EVERY 35 DAY CYCLE
     Route: 065
  3. CEDAZURIDINE\DECITABINE [Suspect]
     Active Substance: CEDAZURIDINE\DECITABINE
     Dosage: UNK
     Route: 065
     Dates: start: 202201
  4. CEDAZURIDINE\DECITABINE [Suspect]
     Active Substance: CEDAZURIDINE\DECITABINE
     Dosage: EVERY 42 DAYS CYCLE
     Route: 065

REACTIONS (9)
  - Pneumonia [Fatal]
  - Haemoglobin abnormal [Recovering/Resolving]
  - Platelet count abnormal [Unknown]
  - General physical health deterioration [Unknown]
  - Eastern Cooperative Oncology Group performance status worsened [Unknown]
  - Full blood count abnormal [Unknown]
  - COVID-19 [Unknown]
  - Fatigue [Unknown]
  - Product use issue [Unknown]
